FAERS Safety Report 4906091-3 (Version None)
Quarter: 2006Q1

REPORT INFORMATION
  Report Type: 
  Country: None (occurrence: None)
  Receive Date: 20060207
  Receipt Date: 20060207
  Transmission Date: 20060701
  Serious: Yes (Hospitalization)
  Sender: FDA-Public Use
  Company Number: None

PATIENT
  Age: 62 Year
  Weight: 132.6 kg

DRUGS (17)
  1. ROSIGLITAZONE [Suspect]
     Indication: DIABETES MELLITUS
     Dosage: 8 MG DAILY REVIEWED 12/04-11/7
     Dates: start: 20041201, end: 20051107
  2. MULTI-VITAMIN [Concomitant]
  3. ASPIRIN [Concomitant]
  4. BACITRACIN/HC 1% .NEO/POLYMX TOP OINT [Concomitant]
  5. CLOTRIMAZOLE [Concomitant]
  6. CURASOL WOUND DRESSING TOP GEL [Concomitant]
  7. FUROSEMIDE [Concomitant]
  8. HYDROCODONE 5/ACETAMINOPHEN [Concomitant]
  9. ROSIGLITAZONE MALEATE [Concomitant]
  10. HYDROPHILIC [Concomitant]
  11. LISINOPRIL [Concomitant]
  12. FLUOXETINE HCL [Concomitant]
  13. ATENOLOL [Concomitant]
  14. HUMULIN R [Concomitant]
  15. SIMVASTATIN [Concomitant]
  16. INSULIN SYRG [Concomitant]
  17. GUAIFENESIN [Concomitant]

REACTIONS (2)
  - DYSPNOEA [None]
  - OEDEMA [None]
